FAERS Safety Report 17546235 (Version 1)
Quarter: 2020Q1

REPORT INFORMATION
  Report Type: Spontaneous
  Country: US (occurrence: US)
  Receive Date: 20200316
  Receipt Date: 20200316
  Transmission Date: 20200409
  Serious: Yes (Hospitalization)
  Sender: FDA-Public Use
  Company Number: None

PATIENT
  Age: 56 Year
  Sex: Male

DRUGS (4)
  1. VALSARTAN. [Concomitant]
     Active Substance: VALSARTAN
  2. COLYTE/FLAVR [Concomitant]
  3. ATORVASTATIN [Concomitant]
     Active Substance: ATORVASTATIN
  4. GLATIRAMER [Suspect]
     Active Substance: GLATIRAMER
     Indication: MULTIPLE SCLEROSIS
     Dosage: ?          OTHER FREQUENCY:THREE TIMES A WEEK;?
     Route: 058
     Dates: start: 20180816

REACTIONS (2)
  - Multiple sclerosis relapse [None]
  - Therapy cessation [None]

NARRATIVE: CASE EVENT DATE: 20200309
